FAERS Safety Report 18243895 (Version 1)
Quarter: 2020Q3

REPORT INFORMATION
  Report Type: Spontaneous
  Country: ES (occurrence: ES)
  Receive Date: 20200908
  Receipt Date: 20200908
  Transmission Date: 20201103
  Serious: Yes (Hospitalization)
  Sender: FDA-Public Use
  Company Number: ES-MYLANLABS-2020M1076497

PATIENT
  Age: 100 Year
  Sex: Female

DRUGS (1)
  1. ENALAPRIL/HYDROCHLOROTHIAZIDE [Suspect]
     Active Substance: ENALAPRIL MALEATE\HYDROCHLOROTHIAZIDE
     Indication: HYPERTENSION
     Dosage: 1 DOSAGE FORM, QD (ENALAPRIL/HCTZ 20?12,5MG 1 COMP EN DESAYUNO)
     Route: 048
     Dates: start: 20140117, end: 20200724

REACTIONS (2)
  - Condition aggravated [Recovered/Resolved]
  - Acute kidney injury [Recovered/Resolved]

NARRATIVE: CASE EVENT DATE: 20200725
